FAERS Safety Report 12821152 (Version 2)
Quarter: 2017Q1

REPORT INFORMATION
  Report Type: Report from Study
  Country: None (occurrence: US)
  Receive Date: 20161006
  Receipt Date: 20170110
  Transmission Date: 20170428
  Serious: Yes (Hospitalization)
  Sender: FDA-Public Use
  Company Number: US-ABBVIE-16K-163-1739990-00

PATIENT
  Age: 65 Year
  Sex: Female

DRUGS (2)
  1. HUMIRA [Suspect]
     Active Substance: ADALIMUMAB
     Indication: RHEUMATOID ARTHRITIS
     Route: 058
     Dates: start: 20160516, end: 20160801
  2. HUMIRA [Suspect]
     Active Substance: ADALIMUMAB
     Route: 058
     Dates: start: 20160926, end: 20161121

REACTIONS (17)
  - Neck pain [Unknown]
  - Urinary tract infection [Unknown]
  - Arthralgia [Unknown]
  - Joint swelling [Unknown]
  - Gait disturbance [Unknown]
  - Fungal infection [Recovered/Resolved]
  - Activities of daily living impaired [Unknown]
  - Joint stiffness [Unknown]
  - Gait disturbance [Unknown]
  - Fungal infection [Unknown]
  - Pain [Unknown]
  - Joint stiffness [Unknown]
  - Rheumatoid scleritis [Unknown]
  - Activities of daily living impaired [Unknown]
  - Musculoskeletal stiffness [Unknown]
  - Joint swelling [Unknown]
  - Arthralgia [Unknown]

NARRATIVE: CASE EVENT DATE: 2016
